FAERS Safety Report 4449160-7 (Version None)
Quarter: 2004Q3

REPORT INFORMATION
  Report Type: 
  Country: None (occurrence: None)
  Receive Date: 20040910
  Receipt Date: 20040824
  Transmission Date: 20050211
  Serious: Yes (Death)
  Sender: FDA-Public Use
  Company Number: J081-AC002T-3497

PATIENT
  Age: 73 Year
  Sex: Female

DRUGS (6)
  1. DONEPEZIL HCL [Suspect]
     Indication: DEMENTIA
     Dosage: SEE IMAGE, ORAL
     Route: 048
     Dates: start: 20020218, end: 20020317
  2. DONEPEZIL HCL [Suspect]
     Indication: DEMENTIA
     Dosage: SEE IMAGE, ORAL
     Route: 048
     Dates: start: 20020318, end: 20020512
  3. DONEPEZIL HCL [Suspect]
     Indication: DEMENTIA
     Dosage: SEE IMAGE, ORAL
     Route: 048
     Dates: start: 20020513, end: 20020704
  4. NIFEDIPINE [Concomitant]
  5. DOXAZOSIN MESYLATE [Concomitant]
  6. AMARYL [Concomitant]

REACTIONS (1)
  - DIARRHOEA [None]
